FAERS Safety Report 7991851-5 (Version None)
Quarter: 2011Q4

REPORT INFORMATION
  Report Type: 
  Country: None (occurrence: None)
  Receive Date: 20111219
  Receipt Date: 20111216
  Transmission Date: 20120403
  Serious: Yes (Other)
  Sender: FDA-Public Use
  Company Number: US-PFIZER INC-2011306833

PATIENT
  Sex: Female
  Weight: 54.422 kg

DRUGS (1)
  1. CHANTIX [Suspect]
     Indication: SMOKING CESSATION THERAPY
     Dosage: 0.5 MG, DAILY
     Dates: start: 20111101, end: 20111201

REACTIONS (5)
  - AGGRESSION [None]
  - MALAISE [None]
  - DYSPNOEA [None]
  - NAUSEA [None]
  - DIZZINESS [None]
